FAERS Safety Report 4265976-4 (Version None)
Quarter: 2004Q1

REPORT INFORMATION
  Report Type: 
  Country: None (occurrence: None)
  Receive Date: 20040106
  Receipt Date: 20031224
  Transmission Date: 20041129
  Serious: Yes (Hospitalization, Other)
  Sender: FDA-Public Use
  Company Number: HQWYE905024DEC03

PATIENT
  Age: 71 Year
  Sex: Male

DRUGS (6)
  1. CORDARONE [Suspect]
     Indication: ATRIAL FIBRILLATION
     Dosage: 100 MG 1X PER 1 DAY
     Route: 048
  2. SINTROM [Suspect]
     Indication: ATRIAL FIBRILLATION
     Dosage: 2 MG 1X PER 1 DAY
     Route: 048
     Dates: start: 20030401, end: 20031029
  3. ZOCOR [Suspect]
     Indication: HYPERLIPIDAEMIA
     Dosage: 20 MG 1X PER 1 DAY
     Route: 048
     Dates: end: 20031029
  4. TENORMIN [Concomitant]
  5. UN-ALFA (ALFACALCIDOL) [Concomitant]
  6. ADANCOR (NICORANDIL) [Concomitant]

REACTIONS (6)
  - ANAEMIA [None]
  - DIVERTICULUM INTESTINAL HAEMORRHAGIC [None]
  - DRUG INTERACTION [None]
  - INTERNATIONAL NORMALISED RATIO INCREASED [None]
  - PROTHROMBIN TIME PROLONGED [None]
  - RECTAL HAEMORRHAGE [None]
